FAERS Safety Report 5000368-1 (Version None)
Quarter: 2006Q2

REPORT INFORMATION
  Report Type: 
  Country: None (occurrence: None)
  Receive Date: 20060511
  Receipt Date: 20060126
  Transmission Date: 20061013
  Serious: Yes (Death, Hospitalization)
  Sender: FDA-Public Use
  Company Number: US-MERCK-0601USA03598

PATIENT
  Age: 73 Year
  Sex: Female

DRUGS (1)
  1. VIOXX [Suspect]
     Route: 048
     Dates: start: 20001201, end: 20031201

REACTIONS (5)
  - AORTIC STENOSIS [None]
  - ATRIAL FIBRILLATION [None]
  - EPIGASTRIC DISCOMFORT [None]
  - FLANK PAIN [None]
  - MYOCARDIAL INFARCTION [None]
